FAERS Safety Report 13291009 (Version 1)
Quarter: 2017Q1

REPORT INFORMATION
  Report Type: Spontaneous
  Country: GB (occurrence: GB)
  Receive Date: 20170302
  Receipt Date: 20170302
  Transmission Date: 20170428
  Serious: Yes (Hospitalization, Other)
  Sender: FDA-Public Use
  Company Number: GB-SA-200520884GDDC

PATIENT
  Age: 60 Year
  Sex: Male

DRUGS (10)
  1. GLIBENCLAMIDE [Suspect]
     Active Substance: GLYBURIDE
     Indication: POISONING DELIBERATE
     Route: 065
  2. METFORMIN [Suspect]
     Active Substance: METFORMIN HYDROCHLORIDE
     Indication: TYPE 2 DIABETES MELLITUS
     Route: 065
  3. NO MENTION OF CONCOMITANT DRUG [Concomitant]
  4. GLIBENCLAMIDE [Suspect]
     Active Substance: GLYBURIDE
     Indication: POISONING DELIBERATE
     Dosage: DOSE AS USED: 20 DOSES X 5 MG
     Route: 065
  5. METFORMIN [Suspect]
     Active Substance: METFORMIN HYDROCHLORIDE
     Indication: POISONING DELIBERATE
     Route: 065
  6. GLIBENCLAMIDE [Suspect]
     Active Substance: GLYBURIDE
     Indication: TYPE 2 DIABETES MELLITUS
     Route: 065
  7. GLIBENCLAMIDE [Suspect]
     Active Substance: GLYBURIDE
     Indication: TYPE 2 DIABETES MELLITUS
     Dosage: DOSE AS USED: 20 DOSES X 5 MG
     Route: 065
  8. METFORMIN [Suspect]
     Active Substance: METFORMIN HYDROCHLORIDE
     Indication: POISONING DELIBERATE
     Dosage: DOSE AS USED: 100 DOSE X 500 MG DOSE
     Route: 065
  9. METFORMIN [Suspect]
     Active Substance: METFORMIN HYDROCHLORIDE
     Indication: TYPE 2 DIABETES MELLITUS
     Dosage: DOSE AS USED: 100 DOSE X 500 MG DOSE
     Route: 065
  10. IBUPROFEN. [Suspect]
     Active Substance: IBUPROFEN
     Indication: POISONING DELIBERATE
     Dosage: DOSE AS USED: 20 DOSES X 400 MG DOSE
     Route: 065

REACTIONS (20)
  - Lactic acidosis [Recovered/Resolved]
  - Vomiting [Recovered/Resolved]
  - Back pain [Recovered/Resolved]
  - Blood pH decreased [Recovered/Resolved]
  - Overdose [Unknown]
  - Blood bicarbonate decreased [Recovered/Resolved]
  - Tachypnoea [Recovered/Resolved]
  - Somnolence [Recovered/Resolved]
  - Apnoea [Recovered/Resolved]
  - Abdominal pain [Recovered/Resolved]
  - Cardiac index increased [Recovered/Resolved]
  - Mean arterial pressure decreased [Recovered/Resolved]
  - Agitation [Recovered/Resolved]
  - Circulatory collapse [Recovered/Resolved]
  - Anuria [Recovered/Resolved]
  - Vascular resistance systemic decreased [Recovered/Resolved]
  - Intentional overdose [Unknown]
  - PCO2 decreased [Recovered/Resolved]
  - Body temperature decreased [Recovered/Resolved]
  - Ventricular fibrillation [Recovered/Resolved]
